FAERS Safety Report 14841777 (Version 2)
Quarter: 2018Q2

REPORT INFORMATION
  Report Type: Spontaneous
  Country: GR (occurrence: GR)
  Receive Date: 20180503
  Receipt Date: 20180515
  Transmission Date: 20180711
  Serious: Yes (Other)
  Sender: FDA-Public Use
  Company Number: GR-SYNTHON BV-NL01PV18_46885

PATIENT
  Age: 87 Year
  Sex: Male
  Weight: 70 kg

DRUGS (2)
  1. ZIDROLIN [Suspect]
     Active Substance: TAMSULOSIN
     Indication: CALCULUS BLADDER
     Dosage: 0.4 MG, QD
     Route: 048
     Dates: start: 20180415, end: 20180419
  2. ZIDROLIN [Suspect]
     Active Substance: TAMSULOSIN
     Dosage: 0.4 MG, QD
     Dates: start: 20180506

REACTIONS (1)
  - Eye haematoma [Recovered/Resolved]

NARRATIVE: CASE EVENT DATE: 20180417
